FAERS Safety Report 15322878 (Version 1)
Quarter: 2018Q3

REPORT INFORMATION
  Report Type: Report from Study
  Country: IS (occurrence: IS)
  Receive Date: 20180827
  Receipt Date: 20180827
  Transmission Date: 20181010
  Serious: Yes (Death)
  Sender: FDA-Public Use
  Company Number: IS-MYLANLABS-2018M1063271

PATIENT
  Age: 82 Year

DRUGS (8)
  1. CLARITHROMYCIN. [Suspect]
     Active Substance: CLARITHROMYCIN
     Indication: OESOPHAGEAL CANDIDIASIS
  2. CLARITHROMYCIN. [Suspect]
     Active Substance: CLARITHROMYCIN
     Indication: HELICOBACTER INFECTION
     Route: 065
  3. RABEPRAZOLE [Suspect]
     Active Substance: RABEPRAZOLE
     Indication: OESOPHAGEAL CANDIDIASIS
  4. AMOXICILLIN. [Suspect]
     Active Substance: AMOXICILLIN
     Indication: HELICOBACTER INFECTION
     Route: 065
  5. RABEPRAZOLE [Suspect]
     Active Substance: RABEPRAZOLE
     Indication: HELICOBACTER INFECTION
     Route: 065
  6. AMOXICILLIN. [Suspect]
     Active Substance: AMOXICILLIN
     Indication: OESOPHAGEAL CANDIDIASIS
  7. FLUCONAZOLE. [Suspect]
     Active Substance: FLUCONAZOLE
     Indication: OESOPHAGEAL CANDIDIASIS
  8. FLUCONAZOLE. [Suspect]
     Active Substance: FLUCONAZOLE
     Indication: HELICOBACTER INFECTION
     Route: 065

REACTIONS (3)
  - Drug-induced liver injury [Fatal]
  - Renal failure [Fatal]
  - Cardiac failure chronic [Fatal]
